FAERS Safety Report 17958954 (Version 1)
Quarter: 2020Q2

REPORT INFORMATION
  Report Type: Spontaneous
  Country: US (occurrence: US)
  Receive Date: 20200629
  Receipt Date: 20200629
  Transmission Date: 20200714
  Serious: Yes (Death)
  Sender: FDA-Public Use
  Company Number: US-VYERA PHARMACEUTICALS, LLC-2020VYE00033

PATIENT
  Age: 48 Year
  Sex: Female

DRUGS (2)
  1. DARAPRIM [Suspect]
     Active Substance: PYRIMETHAMINE
     Dosage: 25 MG, 1X/DAY
     Route: 048
     Dates: start: 20170929, end: 2020
  2. LEVOFLOXACIN. [Concomitant]
     Active Substance: LEVOFLOXACIN

REACTIONS (2)
  - Death [Fatal]
  - Off label use [Recovered/Resolved]

NARRATIVE: CASE EVENT DATE: 20170929
